FAERS Safety Report 9719133 (Version 1)
Quarter: 2013Q4

REPORT INFORMATION
  Report Type: Spontaneous
  Country: US (occurrence: US)
  Receive Date: 20131127
  Receipt Date: 20131127
  Transmission Date: 20140711
  Serious: Yes (Other)
  Sender: FDA-Public Use
  Company Number: CHPA2013US017512

PATIENT
  Age: 66 Year
  Sex: Female

DRUGS (3)
  1. GAS-X EXTSTR CHEWABLE TABS CHERRY CREME [Suspect]
     Indication: FLATULENCE
     Dosage: 1 DF, PRN
     Route: 048
  2. GAS-X EXTSTR CHEWABLE TABS CHERRY CREME [Suspect]
     Indication: ABDOMINAL DISCOMFORT
  3. GAS-X EXTSTR CHEWABLE TABS CHERRY CREME [Suspect]
     Indication: ABDOMINAL DISTENSION

REACTIONS (3)
  - Coeliac disease [Recovering/Resolving]
  - Limb crushing injury [Unknown]
  - Fall [Unknown]
